FAERS Safety Report 14755686 (Version 4)
Quarter: 2019Q3

REPORT INFORMATION
  Report Type: Spontaneous
  Country: JP (occurrence: JP)
  Receive Date: 20180413
  Receipt Date: 20190715
  Transmission Date: 20191004
  Serious: Yes (Death, Hospitalization, Disabling, Other)
  Sender: FDA-Public Use
  Company Number: JP-BRISTOL-MYERS SQUIBB COMPANY-BMS-2018-010982

PATIENT
  Age: 71 Year
  Sex: Male

DRUGS (6)
  1. OPDIVO [Suspect]
     Active Substance: NIVOLUMAB
     Indication: GASTRIC CANCER
     Dosage: 3 MG/KG, UNK
     Route: 041
     Dates: start: 20180109, end: 20180109
  2. BISOPROLOL FUMARATE. [Concomitant]
     Active Substance: BISOPROLOL FUMARATE
     Indication: HYPERTENSION
     Dosage: 2.5 MILLIGRAM, QD
     Route: 048
     Dates: start: 20170613, end: 20180210
  3. MAALOX ANTACID [Concomitant]
     Active Substance: ALUMINUM HYDROXIDE\DIMETHICONE\MAGNESIUM HYDROXIDE
     Indication: GASTRIC ULCER
     Dosage: 1.2 GRAM, Q12H
     Route: 048
     Dates: start: 20171110, end: 20180210
  4. MEVALOTIN [Concomitant]
     Active Substance: PRAVASTATIN SODIUM
     Indication: DYSLIPIDAEMIA
     Dosage: 10 MILLIGRAM, QD
     Route: 048
     Dates: end: 20180126
  5. MAGMITT [Concomitant]
     Active Substance: MAGNESIUM OXIDE
     Indication: CONSTIPATION
     Dosage: 330 MILLIGRAM, Q8H
     Route: 048
     Dates: start: 20171024, end: 20180210
  6. TAKECAB [Concomitant]
     Active Substance: VONOPRAZAN FUMURATE
     Indication: GASTRIC ULCER
     Dosage: 20 MILLIGRAM, QD
     Route: 048
     Dates: start: 20170412, end: 20180210

REACTIONS (7)
  - Malignant neoplasm progression [Fatal]
  - Paraneoplastic dermatomyositis [Recovered/Resolved with Sequelae]
  - Pyrexia [Recovered/Resolved]
  - Hyperamylasaemia [Recovered/Resolved]
  - Pain in extremity [Not Recovered/Not Resolved]
  - Stomatitis [Recovering/Resolving]
  - Oedema [Not Recovered/Not Resolved]

NARRATIVE: CASE EVENT DATE: 20180109
